FAERS Safety Report 11835646 (Version 1)
Quarter: 2015Q4

REPORT INFORMATION
  Report Type: Report from Study
  Country: US (occurrence: US)
  Receive Date: 20151215
  Receipt Date: 20151215
  Transmission Date: 20160305
  Serious: No
  Sender: FDA-Public Use
  Company Number: US-AMGEN-USASL2015132621

PATIENT
  Sex: Female

DRUGS (2)
  1. ENBREL [Suspect]
     Active Substance: ETANERCEPT
     Indication: OSTEOMYELITIS DRAINAGE
  2. ENBREL [Suspect]
     Active Substance: ETANERCEPT
     Indication: OSTEOMYELITIS
     Dosage: 25 MG, 2 TIMES/WK
     Route: 065

REACTIONS (1)
  - Off label use [Not Recovered/Not Resolved]
